FAERS Safety Report 17035337 (Version 5)
Quarter: 2020Q1

REPORT INFORMATION
  Report Type: Report from Study
  Country: US (occurrence: US)
  Receive Date: 20191115
  Receipt Date: 20200114
  Transmission Date: 20200409
  Serious: Yes (Death, Hospitalization, Other)
  Sender: FDA-Public Use
  Company Number: US-ROCHE-2463641

PATIENT
  Sex: Male

DRUGS (5)
  1. VEMURAFENIB. [Suspect]
     Active Substance: VEMURAFENIB
     Dosage: PRIOR TO SAE: 31/OCT/2019
     Route: 065
     Dates: start: 20191102
  2. LASIX [Concomitant]
     Active Substance: FUROSEMIDE
     Route: 042
     Dates: start: 20191130
  3. VEMURAFENIB. [Suspect]
     Active Substance: VEMURAFENIB
     Indication: HAIRY CELL LEUKAEMIA
     Dosage: PRIOR TO SAE: 31/OCT/2019.?MOST RECENT DOSE PRIOR TO SAE: 26/NOV/2019
     Route: 065
     Dates: start: 20191029, end: 20191210
  4. OBINUTUZUMAB. [Suspect]
     Active Substance: OBINUTUZUMAB
     Indication: HAIRY CELL LEUKAEMIA
     Dosage: MOST RECENT DOSE PRIOR TO SAE: 26/NOV/2019
     Route: 042
     Dates: start: 20191029, end: 20191203
  5. METOPROLOL. [Concomitant]
     Active Substance: METOPROLOL

REACTIONS (11)
  - Pneumonia [Unknown]
  - Pneumothorax [Unknown]
  - Pyrexia [Recovered/Resolved]
  - Dyspnoea [Recovered/Resolved]
  - Oedema peripheral [Unknown]
  - Aspiration [Unknown]
  - Atrial fibrillation [Recovered/Resolved]
  - Muscular weakness [Recovered/Resolved]
  - Pneumonia [Recovered/Resolved]
  - Death [Fatal]
  - Urinary retention [Recovered/Resolved]

NARRATIVE: CASE EVENT DATE: 20191031
